FAERS Safety Report 17571588 (Version 2)
Quarter: 2020Q2

REPORT INFORMATION
  Report Type: Report from Study
  Country: None (occurrence: CH)
  Receive Date: 20200323
  Receipt Date: 20200403
  Transmission Date: 20200713
  Serious: Yes (Hospitalization)
  Sender: FDA-Public Use
  Company Number: CH-ABBVIE-20K-151-3331235-00

PATIENT
  Age: 74 Year
  Sex: Male

DRUGS (5)
  1. DUODOPA [Suspect]
     Active Substance: CARBIDOPA\LEVODOPA
     Dosage: MD: 7.3 ML, CR DAY: 2.7 ML/H, CR NIGHT: 0 ML/H, ED: 1 ML?16 H THERAPY
     Route: 050
     Dates: start: 20180510, end: 20190215
  2. STALEVO [Concomitant]
     Active Substance: CARBIDOPA\ENTACAPONE\LEVODOPA
     Indication: PARKINSON^S DISEASE
     Dosage: 3 AT ONCE
     Route: 048
     Dates: start: 20200319, end: 20200319
  3. DUODOPA [Suspect]
     Active Substance: CARBIDOPA\LEVODOPA
     Indication: PARKINSON^S DISEASE
     Route: 050
     Dates: start: 20161005, end: 20180510
  4. DUODOPA [Suspect]
     Active Substance: CARBIDOPA\LEVODOPA
     Dosage: MD: 5 ML, CR DAY: 2.7 ML/H, CR NIGHT: 0 ML/H, ED: 1 ML 16 H THERAPY
     Route: 050
     Dates: start: 20200319
  5. DUODOPA [Suspect]
     Active Substance: CARBIDOPA\LEVODOPA
     Dosage: MD: 5 ML, CR DAY: 2.7 ML/H, CR NIGHT: 0 ML/H, ED: 1 ML 16 H THERAPY
     Route: 050
     Dates: start: 20190215, end: 20200318

REACTIONS (5)
  - Wrong device used [Recovered/Resolved]
  - Unintentional medical device removal [Recovered/Resolved]
  - Contusion [Unknown]
  - Dyskinesia [Recovered/Resolved]
  - Hyperkinesia [Recovered/Resolved]

NARRATIVE: CASE EVENT DATE: 2020
